FAERS Safety Report 7280024-X (Version None)
Quarter: 2011Q1

REPORT INFORMATION
  Report Type: 
  Country: None (occurrence: None)
  Receive Date: 20110208
  Receipt Date: 20110126
  Transmission Date: 20110831
  Serious: Yes (Hospitalization)
  Sender: FDA-Public Use
  Company Number: ES-ELI_LILLY_AND_COMPANY-ES201008003434

PATIENT
  Sex: Female

DRUGS (10)
  1. SPASMOCTYL [Concomitant]
     Dosage: UNK, EVERY 6 HRS
     Route: 048
  2. MASTICAL [Concomitant]
     Dosage: UNK, DAILY (1/D)
     Route: 048
  3. PANTOPRAZOLE SODIUM [Concomitant]
     Indication: PROPHYLAXIS
     Dosage: UNK, DAILY (1/D)
     Route: 048
  4. PARACETAMOL [Concomitant]
     Dosage: UNK, EVERY 6 HRS
     Route: 048
  5. SINTROM [Concomitant]
     Route: 048
  6. ADIRO [Concomitant]
     Dosage: UNK, DAILY (1/D)
     Route: 048
  7. LYRICA [Concomitant]
     Dosage: UNK, 2/D
     Route: 048
  8. FORTEO [Suspect]
     Indication: OSTEOPOROSIS
     Dosage: 20 UG, DAILY (1/D)
     Route: 058
     Dates: start: 20090617
  9. OXINORM [Concomitant]
     Dosage: UNK, EVERY 6 HRS
     Route: 048
  10. MORFINA                            /00036302/ [Concomitant]
     Route: 048

REACTIONS (1)
  - ANAEMIA [None]
